FAERS Safety Report 5969301-X (Version None)
Quarter: 2008Q4

REPORT INFORMATION
  Report Type: 
  Country: None (occurrence: None)
  Receive Date: 20081126
  Receipt Date: 20081108
  Transmission Date: 20090506
  Serious: Yes (Other)
  Sender: FDA-Public Use
  Company Number: JP-PFIZER INC-2008098109

PATIENT
  Age: 3 Year
  Sex: Male

DRUGS (1)
  1. ZYVOX [Suspect]
     Indication: INFECTION
     Dosage: DAILY DOSE:240MG
     Route: 042
     Dates: start: 20081106, end: 20081108

REACTIONS (1)
  - EXTRAVASCULAR HAEMOLYSIS [None]
